FAERS Safety Report 25483906 (Version 1)
Quarter: 2025Q2

REPORT INFORMATION
  Report Type: Spontaneous
  Country: US (occurrence: US)
  Receive Date: 20250626
  Receipt Date: 20250626
  Transmission Date: 20250717
  Serious: Yes (Other)
  Sender: PFIZER
  Company Number: US-PFIZER INC-PV202500076349

PATIENT
  Age: 65 Year
  Sex: Male

DRUGS (3)
  1. LORAZEPAM [Suspect]
     Active Substance: LORAZEPAM
     Indication: Catatonia
     Dosage: 3 MG, 3X/DAY (TID) OVER A COURSE OF THREE DAYS)
     Route: 042
  2. LORAZEPAM [Suspect]
     Active Substance: LORAZEPAM
     Dosage: 4 MG, TID
     Route: 042
  3. LORAZEPAM [Suspect]
     Active Substance: LORAZEPAM
     Dosage: 6 MG, (TID OVER THE NEXT THREE DAYS)
     Route: 042

REACTIONS (2)
  - Drug resistance [Unknown]
  - Off label use [Unknown]
